FAERS Safety Report 8450072-2 (Version None)
Quarter: 2012Q2

REPORT INFORMATION
  Report Type: 
  Country: None (occurrence: None)
  Receive Date: 20120614
  Receipt Date: 20120614
  Transmission Date: 20120825
  Serious: Yes (Other)
  Sender: FDA-Public Use
  Company Number: None

PATIENT
  Age: 59 Year
  Sex: Female
  Weight: 81.1939 kg

DRUGS (5)
  1. HUMALOG PEN [Concomitant]
  2. HUMULIN N [Concomitant]
  3. BYETTA [Suspect]
     Indication: DIABETES MELLITUS
     Dosage: INJECT 10 MCG UNDER THE SKIN TWICE A DAY
     Dates: start: 20120101
  4. LANTUS [Concomitant]
  5. METFORMIN HCL [Concomitant]

REACTIONS (2)
  - DIARRHOEA [None]
  - PRODUCT CONTAMINATION PHYSICAL [None]
